FAERS Safety Report 10444588 (Version 3)
Quarter: 2015Q1

REPORT INFORMATION
  Report Type: Spontaneous
  Country: US (occurrence: US)
  Receive Date: 20140910
  Receipt Date: 20150213
  Transmission Date: 20150720
  Serious: Yes (Other)
  Sender: FDA-Public Use
  Company Number: US-BAYER-2014-130332

PATIENT
  Age: 37 Year
  Sex: Female
  Weight: 58.96 kg

DRUGS (1)
  1. MIRENA [Suspect]
     Active Substance: LEVONORGESTREL
     Indication: CONTRACEPTION
     Dosage: 20 MCG/24HR, CONT
     Route: 015
     Dates: start: 20040308, end: 20080801

REACTIONS (12)
  - Injury [None]
  - Pain [None]
  - Genital haemorrhage [None]
  - Depression [None]
  - Device defective [None]
  - Uterine perforation [None]
  - Dyspareunia [None]
  - Coital bleeding [None]
  - Device issue [None]
  - Abdominal pain lower [None]
  - Emotional distress [None]
  - Anxiety [None]

NARRATIVE: CASE EVENT DATE: 2004
